FAERS Safety Report 9575229 (Version 3)
Quarter: 2013Q4

REPORT INFORMATION
  Report Type: Spontaneous
  Country: US (occurrence: US)
  Receive Date: 20131001
  Receipt Date: 20131209
  Transmission Date: 20140711
  Serious: Yes (Other)
  Sender: FDA-Public Use
  Company Number: US-GLAXOSMITHKLINE-A1043359A

PATIENT
  Age: 81 Year
  Sex: Female

DRUGS (2)
  1. LAMICTAL XR [Suspect]
     Indication: CONVULSION
     Dosage: 200MG UNKNOWN
     Route: 065
     Dates: start: 201306
  2. VIMPAT [Concomitant]

REACTIONS (3)
  - Convulsion [Recovered/Resolved]
  - Partial seizures [Recovered/Resolved]
  - Dehydration [Recovered/Resolved]
